FAERS Safety Report 12328598 (Version 1)
Quarter: 2016Q2

REPORT INFORMATION
  Report Type: Spontaneous
  Country: US (occurrence: US)
  Receive Date: 20160503
  Receipt Date: 20160503
  Transmission Date: 20160815
  Serious: No
  Sender: FDA-Public Use
  Company Number: US-BEH-2015049516

PATIENT
  Sex: Male
  Weight: 100 kg

DRUGS (22)
  1. DIPHENHYDRAMINE. [Concomitant]
     Active Substance: DIPHENHYDRAMINE
  2. NORMAL SALINE [Concomitant]
     Active Substance: SODIUM CHLORIDE
  3. MUPIROCIN. [Concomitant]
     Active Substance: MUPIROCIN
  4. ALAVERT D-12 [Concomitant]
  5. ACETAMINOPHEN. [Concomitant]
     Active Substance: ACETAMINOPHEN
  6. LMX [Concomitant]
     Active Substance: LIDOCAINE
  7. SINGULAIR [Concomitant]
     Active Substance: MONTELUKAST SODIUM
  8. LEVOXYL [Concomitant]
     Active Substance: LEVOTHYROXINE SODIUM
  9. GLIPIZIDE. [Concomitant]
     Active Substance: GLIPIZIDE
  10. LIDOCAINE/PRILOCAINE [Concomitant]
  11. EPIPEN [Concomitant]
     Active Substance: EPINEPHRINE
  12. CYMBALTA [Concomitant]
     Active Substance: DULOXETINE HYDROCHLORIDE
  13. CLINDAMYCIN [Concomitant]
     Active Substance: CLINDAMYCIN\CLINDAMYCIN PHOSPHATE
  14. LYRICA [Concomitant]
     Active Substance: PREGABALIN
  15. HIZENTRA [Suspect]
     Active Substance: HUMAN IMMUNOGLOBULIN G
     Indication: IMMUNODEFICIENCY COMMON VARIABLE
     Route: 058
     Dates: start: 20141222, end: 20150118
  16. SODIUM CHLORIDE. [Concomitant]
     Active Substance: SODIUM CHLORIDE
  17. PREDNISOLONE. [Concomitant]
     Active Substance: PREDNISOLONE
  18. CLODERM [Concomitant]
     Active Substance: CLOCORTOLONE PIVALATE
  19. PROVIGIL [Concomitant]
     Active Substance: MODAFINIL
  20. ZYRTEC [Concomitant]
     Active Substance: CETIRIZINE HYDROCHLORIDE
  21. AMOXICILLIN. [Concomitant]
     Active Substance: AMOXICILLIN
  22. NEXIUM [Concomitant]
     Active Substance: ESOMEPRAZOLE MAGNESIUM

REACTIONS (5)
  - Ear infection [Unknown]
  - Pruritus [Unknown]
  - Scratch [Unknown]
  - Skin infection [Unknown]
  - Cough [Unknown]
